FAERS Safety Report 12970347 (Version 8)
Quarter: 2024Q3

REPORT INFORMATION
  Report Type: Report from Study
  Country: IE (occurrence: IE)
  Receive Date: 20161123
  Receipt Date: 20240912
  Transmission Date: 20241017
  Serious: Yes (Death, Hospitalization)
  Sender: JOHNSON AND JOHNSON
  Company Number: IE-JNJFOC-20161124043

PATIENT
  Age: 60 Year
  Sex: Male
  Weight: 90 kg

DRUGS (2)
  1. DARZALEX [Suspect]
     Active Substance: DARATUMUMAB
     Indication: Plasma cell myeloma
     Dosage: ^EVERY WEDNESDAY FOR NINE WEEKS^
     Route: 042
     Dates: start: 2015, end: 20160831
  2. DARZALEX [Suspect]
     Active Substance: DARATUMUMAB
     Dosage: FOR 8 WEEKS
     Dates: start: 201607

REACTIONS (7)
  - Disease progression [Fatal]
  - Cough [Unknown]
  - Amnesia [Unknown]
  - Asthenia [Unknown]
  - Therapy non-responder [Unknown]
  - Drug ineffective [Unknown]
  - Adverse drug reaction [Unknown]

NARRATIVE: CASE EVENT DATE: 20161116
